FAERS Safety Report 4677192-2 (Version None)
Quarter: 2005Q2

REPORT INFORMATION
  Report Type: 
  Country: None (occurrence: None)
  Receive Date: 20050531
  Receipt Date: 20050519
  Transmission Date: 20051028
  Serious: Yes (Hospitalization)
  Sender: FDA-Public Use
  Company Number: US-JNJFOC-20050505571

PATIENT
  Sex: Male
  Weight: 91.63 kg

DRUGS (7)
  1. INFLIXIMAB [Suspect]
     Indication: RHEUMATOID ARTHRITIS
     Route: 042
  2. ASPIRIN [Concomitant]
  3. METHYLDOPA [Concomitant]
  4. METHOTREXATE [Concomitant]
  5. CARDIZEM [Concomitant]
  6. FOLIC ACID [Concomitant]
  7. INDAPAMIDE [Concomitant]

REACTIONS (2)
  - CORONARY ARTERY STENOSIS [None]
  - HYPERTENSION [None]
